FAERS Safety Report 20059661 (Version 5)
Quarter: 2025Q1

REPORT INFORMATION
  Report Type: Spontaneous
  Country: US (occurrence: US)
  Receive Date: 20211111
  Receipt Date: 20250106
  Transmission Date: 20250409
  Serious: Yes (Other)
  Sender: PFIZER
  Company Number: US-PFIZER INC-202101493868

PATIENT
  Age: 73 Year
  Sex: Male
  Weight: 64.41 kg

DRUGS (4)
  1. VYNDAMAX [Suspect]
     Active Substance: TAFAMIDIS
     Indication: Acquired ATTR amyloidosis
     Route: 048
     Dates: start: 202108
  2. VYNDAMAX [Suspect]
     Active Substance: TAFAMIDIS
     Indication: Cardiac amyloidosis
     Dosage: 61 MG, DAILY
     Dates: start: 202209
  3. TACROLIMUS [Concomitant]
     Active Substance: TACROLIMUS
     Dosage: TWICE A DAY (HALF A MILLIGRAM IN MORNING AND ONE MILLIGRAM AT NIGHT)
     Dates: start: 201808
  4. MYCOPHENOLIC ACID [Concomitant]
     Active Substance: MYCOPHENOLIC ACID
     Dosage: 500 MILLIGRAMS TWICE A DAY

REACTIONS (1)
  - Blindness [Unknown]
